FAERS Safety Report 9861777 (Version 3)
Quarter: 2014Q2

REPORT INFORMATION
  Report Type: Report from Study
  Country: US (occurrence: US)
  Receive Date: 20140203
  Receipt Date: 20140402
  Transmission Date: 20141212
  Serious: Yes (Other)
  Sender: FDA-Public Use
  Company Number: US-ROCHE-1310398

PATIENT
  Sex: Female

DRUGS (7)
  1. LUCENTIS [Suspect]
     Indication: DIABETIC RETINAL OEDEMA
     Dosage: BOTH EYES (OU), OD EVERY 12 WEEKS AND OS EVERY 8 WEEKS
     Route: 050
     Dates: start: 20131007
  2. LUCENTIS [Suspect]
     Dosage: RIGHT EYE
     Route: 050
     Dates: start: 20140120
  3. AVASTIN [Suspect]
     Indication: PRODUCT USED FOR UNKNOWN INDICATION
     Route: 065
  4. EXFORGE [Concomitant]
  5. VYTORIN [Concomitant]
     Dosage: 10-10
     Route: 065
  6. INSULIN HUMAN [Concomitant]
  7. LANTUS [Concomitant]
     Dosage: 100 UNIT/ML
     Route: 065

REACTIONS (6)
  - Macular oedema [Unknown]
  - Macular pigmentation [Unknown]
  - Retinal degeneration [Unknown]
  - Visual acuity reduced [Unknown]
  - Pinguecula [Unknown]
  - Retinal scar [Unknown]
